FAERS Safety Report 19454889 (Version 1)
Quarter: 2021Q2

REPORT INFORMATION
  Report Type: Spontaneous
  Country: US (occurrence: US)
  Receive Date: 20210623
  Receipt Date: 20210623
  Transmission Date: 20210717
  Serious: Yes (Hospitalization)
  Sender: FDA-Public Use
  Company Number: US-AMERICAN REGENT INC-2021001598

PATIENT
  Age: 3 Decade
  Sex: Female

DRUGS (1)
  1. TESTOSTERONE CYPIONATE INJECTION (0517?1830?01) [Suspect]
     Active Substance: TESTOSTERONE CYPIONATE
     Indication: GENDER REASSIGNMENT THERAPY
     Dosage: 200 MILLIGRAM BIMONTHLY
     Route: 030

REACTIONS (4)
  - Product use issue [Unknown]
  - Cerebrospinal fluid leakage [Recovered/Resolved]
  - Idiopathic intracranial hypertension [Recovered/Resolved]
  - Product use in unapproved indication [Unknown]
